FAERS Safety Report 5007520-X (Version None)
Quarter: 2006Q2

REPORT INFORMATION
  Report Type: 
  Country: None (occurrence: None)
  Receive Date: 20060522
  Receipt Date: 20060510
  Transmission Date: 20061013
  Serious: Yes (Other)
  Sender: FDA-Public Use
  Company Number: PHBS2006JP07133

PATIENT
  Age: 24 Year
  Sex: Male

DRUGS (21)
  1. CARBAMAZEPINE [Suspect]
     Indication: SCHIZOPHRENIA
     Dosage: 1000 MG/DAY
     Route: 048
  2. CARBAMAZEPINE [Suspect]
     Dosage: 400 MG/DAY
     Route: 048
  3. CARBAMAZEPINE [Suspect]
     Dosage: 300 MG/DAY
     Route: 048
  4. CARBAMAZEPINE [Suspect]
     Dosage: 200 MG/DAY
     Route: 048
  5. BRIPERIDEN [Suspect]
     Indication: SCHIZOPHRENIA
     Dosage: 2 MG/DAY
     Route: 065
  6. CHLORPROMAZINE [Suspect]
     Indication: SCHIZOPHRENIA
     Dosage: 400 MG/DAY
     Route: 065
  7. CHLORPROMAZINE [Suspect]
     Dosage: 25 MG/DAY
     Route: 065
  8. HALOPERIDOL [Suspect]
     Indication: SCHIZOPHRENIA
     Dosage: 15 MG/DAY
     Route: 065
  9. HALOPERIDOL [Suspect]
     Dosage: 6 MG/DAY
     Route: 065
  10. HALOPERIDOL [Suspect]
     Dosage: 4 MG/DAY
     Route: 065
  11. HALOPERIDOL [Suspect]
     Dosage: 3 MG/DAY
     Route: 065
  12. HALOPERIDOL [Suspect]
     Dosage: 2 MG/DAY
     Route: 065
  13. LEVOMEPROMAZINE SANDOZ (NGX) [Suspect]
     Indication: SCHIZOPHRENIA
     Dosage: 400 MG/DAY
     Route: 065
  14. LEVOMEPROMAZINE SANDOZ (NGX) [Suspect]
     Dosage: 275 MG/DAY
     Route: 065
  15. PROMETHAZINE [Suspect]
     Indication: SCHIZOPHRENIA
     Dosage: 112.5 MG/DAY
     Route: 065
  16. PROMETHAZINE [Suspect]
     Dosage: 50 MG/DAY
     Route: 065
  17. PROMETHAZINE [Suspect]
     Dosage: 25 MG/DAY
     Route: 065
  18. SULTOPRIDE HYDROCHLORIDE [Suspect]
     Indication: SCHIZOPHRENIA
     Dosage: 1200 MG/DAY
     Route: 048
  19. ZOTEPINE [Suspect]
     Indication: SCHIZOPHRENIA
     Dosage: 300 MG/DAY
     Route: 048
  20. RISPERIDONE [Concomitant]
     Indication: SCHIZOPHRENIA
     Dosage: 2 MG/DAY
     Route: 048
  21. RISPERIDONE [Concomitant]
     Dosage: 4 MG/DAY
     Route: 048

REACTIONS (1)
  - PLEUROTHOTONUS [None]
